FAERS Safety Report 20773211 (Version 1)
Quarter: 2022Q2

REPORT INFORMATION
  Report Type: Spontaneous
  Country: US (occurrence: None)
  Receive Date: 20220429
  Receipt Date: 20220429
  Transmission Date: 20220721
  Serious: No
  Sender: FDA-Public Use
  Company Number: None

PATIENT
  Age: 78 Year
  Sex: Male

DRUGS (1)
  1. REVLIMID [Suspect]
     Active Substance: LENALIDOMIDE
     Indication: Myelodysplastic syndrome
     Dosage: FREQUENCY : DAILY;?
     Route: 048
     Dates: start: 20220215

REACTIONS (5)
  - Diarrhoea [None]
  - Decreased appetite [None]
  - Dizziness [None]
  - Cough [None]
  - Therapy cessation [None]

NARRATIVE: CASE EVENT DATE: 20220414
